FAERS Safety Report 22613044 (Version 1)
Quarter: 2023Q2

REPORT INFORMATION
  Report Type: Spontaneous
  Country: US (occurrence: US)
  Receive Date: 20230618
  Receipt Date: 20230618
  Transmission Date: 20230722
  Serious: No
  Sender: FDA-Public Use
  Company Number: US-TEVA-2023-US-2893586

PATIENT
  Sex: Female

DRUGS (4)
  1. ALBUTEROL [Suspect]
     Active Substance: ALBUTEROL
     Indication: Bronchitis chronic
     Route: 065
  2. ALBUTEROL [Suspect]
     Active Substance: ALBUTEROL
     Indication: Atypical pneumonia
  3. ALBUTEROL [Suspect]
     Active Substance: ALBUTEROL
     Indication: Wheezing
  4. ALBUTEROL [Suspect]
     Active Substance: ALBUTEROL
     Indication: Cough

REACTIONS (3)
  - Feeling abnormal [Unknown]
  - Fatigue [Unknown]
  - Terminal insomnia [Unknown]
